FAERS Safety Report 18067912 (Version 2)
Quarter: 2020Q3

REPORT INFORMATION
  Report Type: Report from Study
  Country: BR (occurrence: BR)
  Receive Date: 20200725
  Receipt Date: 20200729
  Transmission Date: 20201103
  Serious: Yes (Other)
  Sender: FDA-Public Use
  Company Number: BR-AMGEN-BRANI2020104624

PATIENT
  Sex: Male

DRUGS (10)
  1. PASURTA [Suspect]
     Active Substance: ERENUMAB
     Dosage: 1 DF, QMO
     Route: 058
     Dates: start: 20200613
  2. PASURTA [Suspect]
     Active Substance: ERENUMAB
     Indication: MIGRAINE
     Dosage: 1 DF, QMO
     Route: 058
     Dates: start: 20200313, end: 20200412
  3. ALPRAZOLAM. [Concomitant]
     Active Substance: ALPRAZOLAM
     Indication: ANXIETY
     Dosage: 0.5 MG, UNKNOWN (MORE THAN 5 YEARS AGO)
     Route: 048
  4. PASURTA [Suspect]
     Active Substance: ERENUMAB
     Dosage: 1 DF, QMO
     Route: 058
     Dates: start: 20200513, end: 20200612
  5. AMPLICTIL [CHLORPROMAZINE] [Concomitant]
     Indication: ANXIETY
     Dosage: 100 MG, UNKNOWN (MORE THAN 5 YEARS AGO)
     Route: 048
  6. PASURTA [Suspect]
     Active Substance: ERENUMAB
     Dosage: 70 MG, QD (ONCE EACH 28 DAYS)
     Route: 058
     Dates: start: 20200313, end: 20200713
  7. SUMAXPRO [Concomitant]
     Indication: MIGRAINE
     Dosage: 50/500 MG, UNKNOWN (4 YEARS AGO)
     Route: 048
  8. SUMAX [SUMATRIPTAN] [Concomitant]
     Indication: MIGRAINE
     Dosage: 50 MG, UNKNOWN (4 YEARS AGO)
     Route: 048
  9. PASURTA [Suspect]
     Active Substance: ERENUMAB
     Dosage: 1 DF, QMO
     Route: 058
     Dates: start: 20200413, end: 20200512
  10. PROPRANOLOL [Concomitant]
     Active Substance: PROPRANOLOL HYDROCHLORIDE
     Indication: MIGRAINE
     Dosage: 20 MG, UNKNOWN (MORE THAN 5 YEARS AGO)
     Route: 048

REACTIONS (3)
  - Constipation [Not Recovered/Not Resolved]
  - Haemorrhoids [Not Recovered/Not Resolved]
  - Drug ineffective [Not Recovered/Not Resolved]
